FAERS Safety Report 18730305 (Version 1)
Quarter: 2021Q1

REPORT INFORMATION
  Report Type: Spontaneous
  Country: US (occurrence: US)
  Receive Date: 20210112
  Receipt Date: 20210112
  Transmission Date: 20210419
  Serious: Yes (Hospitalization)
  Sender: FDA-Public Use
  Company Number: None

PATIENT
  Age: 71 Year
  Sex: Female

DRUGS (22)
  1. AMLODIPINE [Concomitant]
     Active Substance: AMLODIPINE BESYLATE
  2. BIOTIN [Concomitant]
     Active Substance: BIOTIN
  3. COENZYME Q10 [Concomitant]
     Active Substance: DIETARY SUPPLEMENT\UBIDECARENONE
  4. DULOXETINE. [Concomitant]
     Active Substance: DULOXETINE
  5. TURMERIC [Concomitant]
     Active Substance: HERBALS\TURMERIC
  6. IMATINIB. [Suspect]
     Active Substance: IMATINIB MESYLATE
     Indication: GASTROINTESTINAL STROMAL TUMOUR
     Route: 048
  7. AMITRIPTYLINE [Concomitant]
     Active Substance: AMITRIPTYLINE
  8. FLAX SEED [Concomitant]
     Active Substance: FLAX SEED
  9. OXAPROZIN. [Concomitant]
     Active Substance: OXAPROZIN
  10. ALDACTONE [Concomitant]
     Active Substance: SPIRONOLACTONE
  11. PANTOPRAZOLE [Concomitant]
     Active Substance: PANTOPRAZOLE
  12. TYLENOL [Concomitant]
     Active Substance: ACETAMINOPHEN
  13. IRON [Concomitant]
     Active Substance: IRON
  14. CALTRATE [Concomitant]
     Active Substance: CALCIUM CARBONATE
  15. FAMOTIDINE. [Concomitant]
     Active Substance: FAMOTIDINE
  16. FISH OIL [Concomitant]
     Active Substance: FISH OIL
  17. OMEGA?3 ACIDS [Concomitant]
     Active Substance: OMEGA-3 FATTY ACIDS
  18. SPIRONOLACTONE. [Concomitant]
     Active Substance: SPIRONOLACTONE
  19. GABAPENTIN. [Concomitant]
     Active Substance: GABAPENTIN
  20. ASPIRIN. [Concomitant]
     Active Substance: ASPIRIN
  21. ONDANSETRON [Concomitant]
     Active Substance: ONDANSETRON
  22. PEPCID [Concomitant]
     Active Substance: FAMOTIDINE

REACTIONS (2)
  - Hospitalisation [None]
  - Therapy interrupted [None]

NARRATIVE: CASE EVENT DATE: 20210108
